FAERS Safety Report 7243888-1 (Version None)
Quarter: 2011Q1

REPORT INFORMATION
  Report Type: 
  Country: None (occurrence: None)
  Receive Date: 20110125
  Receipt Date: 20110118
  Transmission Date: 20110831
  Serious: Yes (Hospitalization)
  Sender: FDA-Public Use
  Company Number: A0908208A

PATIENT
  Age: 37 Year
  Sex: Female
  Weight: 92.9 kg

DRUGS (11)
  1. GABAPENTIN [Concomitant]
     Dosage: 300MG THREE TIMES PER DAY
     Route: 048
  2. ZOFRAN [Concomitant]
     Dosage: 4MG FOUR TIMES PER DAY
     Route: 048
  3. LASIX [Concomitant]
     Dosage: 20MG PER DAY
     Route: 048
  4. FLOLAN [Suspect]
     Route: 065
     Dates: start: 20100506
  5. ZOLPIDEM [Concomitant]
     Dosage: 5MG AT NIGHT
     Route: 048
  6. KLONOPIN [Concomitant]
     Dosage: 1MG TWICE PER DAY
     Route: 048
  7. LIPITOR [Concomitant]
     Dosage: 40MG AT NIGHT
     Route: 048
  8. ATIVAN [Concomitant]
     Dosage: 5MG AT NIGHT
     Route: 048
  9. CYCLOBENZAPRINE [Concomitant]
     Dosage: 5MG TWICE PER DAY
     Route: 048
  10. TYLENOL-500 [Concomitant]
     Dosage: 325MG SIX TIMES PER DAY
     Route: 048
  11. WARFARIN SODIUM [Concomitant]
     Dosage: 4MG PER DAY
     Route: 048

REACTIONS (12)
  - MOVEMENT DISORDER [None]
  - SEPSIS [None]
  - NAUSEA [None]
  - PNEUMONIA [None]
  - DYSPNOEA [None]
  - INTERNATIONAL NORMALISED RATIO DECREASED [None]
  - BODY TEMPERATURE INCREASED [None]
  - PAIN IN EXTREMITY [None]
  - HEADACHE [None]
  - HYPOAESTHESIA [None]
  - BACK PAIN [None]
  - PARAESTHESIA [None]
